FAERS Safety Report 20845830 (Version 1)
Quarter: 2022Q2

REPORT INFORMATION
  Report Type: Spontaneous
  Country: US (occurrence: US)
  Receive Date: 20220518
  Receipt Date: 20220518
  Transmission Date: 20220720
  Serious: No
  Sender: FDA-Public Use
  Company Number: US-PFIZER INC-202101761742

PATIENT
  Age: 84 Year
  Sex: Female
  Weight: 78.02 kg

DRUGS (2)
  1. HYDROCORTISONE ACETATE [Suspect]
     Active Substance: HYDROCORTISONE ACETATE
     Indication: Pruritus
     Dosage: UNK, SQUEEZE LITTLE OUT OF TUBE AND RUB ON AREAS ITCHING WHENEVER IT WOULD IT , AS NEEDED
     Route: 061
  2. HYDROCORTISONE ACETATE [Suspect]
     Active Substance: HYDROCORTISONE ACETATE
     Indication: Rash

REACTIONS (1)
  - Pruritus [Not Recovered/Not Resolved]
